FAERS Safety Report 5800902-5 (Version None)
Quarter: 2008Q3

REPORT INFORMATION
  Report Type: 
  Country: None (occurrence: None)
  Receive Date: 20080701
  Receipt Date: 20080618
  Transmission Date: 20090109
  Serious: Yes (Hospitalization)
  Sender: FDA-Public Use
  Company Number: 100#08#2008-03268

PATIENT
  Age: 68 Year
  Sex: Female

DRUGS (3)
  1. HYDROXYCARBAMIDE (HYDROXYCARBAMIDE) [Suspect]
     Indication: ESSENTIAL THROMBOCYTHAEMIA
     Dosage: 500 MG BD; TWO DOSES OF 500 MG BD (THREE MONTHS AFTER DISCHARGE) ; (A WEEK AFTER THE FIRST DISCONTIN
  2. ATENOLOL [Concomitant]
  3. ACETYLSALICYLIC ACID SRT [Concomitant]

REACTIONS (4)
  - CHOLECYSTITIS CHRONIC [None]
  - CHOLELITHIASIS [None]
  - GALLBLADDER CHOLESTEROLOSIS [None]
  - HEPATITIS [None]
